FAERS Safety Report 18519843 (Version 2)
Quarter: 2020Q4

REPORT INFORMATION
  Report Type: Spontaneous
  Country: US (occurrence: US)
  Receive Date: 20201119
  Receipt Date: 20201218
  Transmission Date: 20210114
  Serious: No
  Sender: FDA-Public Use
  Company Number: US-SA-2020SA323696

PATIENT

DRUGS (1)
  1. CAPRELSA [Suspect]
     Active Substance: VANDETANIB
     Indication: THYROID CANCER
     Dosage: 300 MG, QD (IN THE MORNING WITHOUT FOOD)
     Route: 048
     Dates: start: 20201022

REACTIONS (7)
  - Skin exfoliation [Unknown]
  - Arthralgia [Unknown]
  - Insomnia [Unknown]
  - Rash erythematous [Unknown]
  - Muscular weakness [Unknown]
  - Blood pressure increased [Unknown]
  - Peripheral swelling [Unknown]
